FAERS Safety Report 9538463 (Version 4)
Quarter: 2014Q1

REPORT INFORMATION
  Report Type: Report from Study
  Country: US (occurrence: US)
  Receive Date: 20130920
  Receipt Date: 20140225
  Transmission Date: 20141002
  Serious: Yes (Other)
  Sender: FDA-Public Use
  Company Number: US-JNJFOC-20130809503

PATIENT
  Age: 66 Year
  Sex: Female
  Weight: 75.3 kg

DRUGS (21)
  1. REMICADE [Suspect]
     Indication: CROHN^S DISEASE
     Dosage: 5 MG/KG OR 400 MG AND APPROXIMATELY RECEIVED A TOTAL OF 8 INFUSIONS
     Route: 042
     Dates: start: 20120718
  2. REMICADE [Suspect]
     Indication: CROHN^S DISEASE
     Route: 042
     Dates: start: 201211, end: 20130417
  3. IMURAN [Concomitant]
     Indication: CROHN^S DISEASE
     Route: 048
     Dates: start: 201109, end: 201203
  4. ALBUTEROL SULFATE [Concomitant]
     Dosage: 2 INHALATIONS AS DIRECTED
  5. ASPIR-81 [Concomitant]
     Route: 048
  6. COZAAR [Concomitant]
     Route: 048
  7. FISH OIL [Concomitant]
     Route: 048
  8. HYDROCHLOROTHIAZIDE [Concomitant]
     Dosage: AS DIRECTED
  9. LIPITOR [Concomitant]
     Route: 048
  10. MAGNESIUM OXIDE [Concomitant]
     Route: 048
  11. METANX [Concomitant]
     Dosage: 2-3-35 MG
     Route: 048
  12. METFORMIN [Concomitant]
     Route: 048
  13. GLUCOSAMINE [Concomitant]
     Route: 065
  14. MULTIVITAMINS [Concomitant]
     Route: 048
  15. NEXIUM [Concomitant]
     Route: 048
  16. NORVASC [Concomitant]
     Route: 048
  17. POTASSIUM CHLORIDE [Concomitant]
     Route: 048
  18. SINGULAIR [Concomitant]
     Route: 048
  19. VITAMIN D3 [Concomitant]
     Dosage: 400 UNITS UNSPECIFIED
     Route: 048
  20. VITAMIN C [Concomitant]
     Route: 048
  21. WELCHOL [Concomitant]
     Route: 048

REACTIONS (2)
  - Normochromic normocytic anaemia [Unknown]
  - Invasive ductal breast carcinoma [Recovered/Resolved]
